FAERS Safety Report 14009403 (Version 8)
Quarter: 2018Q4

REPORT INFORMATION
  Report Type: Spontaneous
  Country: CA (occurrence: CA)
  Receive Date: 20170925
  Receipt Date: 20181226
  Transmission Date: 20190204
  Serious: Yes (Other)
  Sender: FDA-Public Use
  Company Number: CA-CELLTRION INC.-2017CA009492

PATIENT

DRUGS (8)
  1. INFLECTRA [Suspect]
     Active Substance: INFLIXIMAB-DYYB
     Indication: RHEUMATOID ARTHRITIS
     Dosage: 500 MG, CYCLIC, THEN EVERY 6 WEEKS
     Route: 042
     Dates: start: 20170421
  2. INFLECTRA [Suspect]
     Active Substance: INFLIXIMAB-DYYB
     Dosage: 500 MG, CYCLIC, THEN EVERY 6 WEEKS
     Route: 042
     Dates: start: 20180103
  3. INFLECTRA [Suspect]
     Active Substance: INFLIXIMAB-DYYB
     Dosage: 500 MG, CYCLIC, THEN EVERY 6 WEEKS
     Route: 042
     Dates: start: 20181018
  4. CORTISONE [Concomitant]
     Active Substance: CORTISONE\HYDROCORTISONE
     Dosage: UNK
     Route: 065
  5. INFLECTRA [Suspect]
     Active Substance: INFLIXIMAB-DYYB
     Dosage: 500 MG, CYCLIC, THEN EVERY 6 WEEKS
     Route: 042
     Dates: start: 20180328
  6. INFLECTRA [Suspect]
     Active Substance: INFLIXIMAB-DYYB
     Dosage: 500 MG, CYCLIC, THEN EVERY 6 WEEKS
     Route: 042
     Dates: start: 20180907
  7. INFLECTRA [Suspect]
     Active Substance: INFLIXIMAB-DYYB
     Dosage: 500 MG, CYCLIC, THEN EVERY 6 WEEKS
     Route: 042
     Dates: start: 20181018
  8. INFLECTRA [Suspect]
     Active Substance: INFLIXIMAB-DYYB
     Dosage: 500 MG, CYCLIC, THEN EVERY 6 WEEKS
     Route: 042
     Dates: start: 20181214

REACTIONS (16)
  - Aphonia [Unknown]
  - Wheezing [Unknown]
  - Nausea [Recovering/Resolving]
  - Bronchitis [Recovered/Resolved]
  - Musculoskeletal stiffness [Unknown]
  - Abdominal pain [Recovering/Resolving]
  - Influenza [Unknown]
  - Ankylosing spondylitis [Unknown]
  - Product use issue [Unknown]
  - Influenza like illness [Unknown]
  - Malaise [Unknown]
  - Productive cough [Unknown]
  - Oropharyngeal pain [Unknown]
  - Blood pressure fluctuation [Unknown]
  - Infection [Unknown]
  - Nasopharyngitis [Unknown]

NARRATIVE: CASE EVENT DATE: 2017
